FAERS Safety Report 5070708-6 (Version None)
Quarter: 2006Q3

REPORT INFORMATION
  Report Type: 
  Country: None (occurrence: None)
  Receive Date: 20060804
  Receipt Date: 20051005
  Transmission Date: 20061208
  Serious: No
  Sender: FDA-Public Use
  Company Number: US-GLAXOSMITHKLINE-A0577137A

PATIENT
  Age: 29 Year
  Sex: Female

DRUGS (1)
  1. NICORETTE [Suspect]
     Dates: start: 20051005, end: 20051005

REACTIONS (5)
  - COUGH [None]
  - GLOSSODYNIA [None]
  - PARAESTHESIA ORAL [None]
  - RETCHING [None]
  - THROAT IRRITATION [None]
